FAERS Safety Report 8894800 (Version 1)
Quarter: 2012Q4

REPORT INFORMATION
  Report Type: Report from Study
  Country: US (occurrence: US)
  Receive Date: 20121108
  Receipt Date: 20121108
  Transmission Date: 20130627
  Serious: Yes (Other)
  Sender: FDA-Public Use
  Company Number: US-JNJFOC-20121103439

PATIENT

DRUGS (2)
  1. STELARA [Suspect]
     Indication: PSORIASIS
     Route: 058
  2. ENBREL [Suspect]
     Indication: PSORIASIS
     Route: 050

REACTIONS (4)
  - Wheezing [Unknown]
  - Cough [Unknown]
  - Respiratory tract infection [Unknown]
  - Hypersensitivity [Unknown]
